FAERS Safety Report 8537595-2 (Version None)
Quarter: 2012Q3

REPORT INFORMATION
  Report Type: 
  Country: None (occurrence: None)
  Receive Date: 20120725
  Receipt Date: 20120717
  Transmission Date: 20120928
  Serious: Yes (Other)
  Sender: FDA-Public Use
  Company Number: JP-VERTEX PHARMACEUTICALS INC.-AE-2012-010714

PATIENT
  Age: 62 Year
  Sex: Male

DRUGS (11)
  1. PEG-INTRON [Concomitant]
     Indication: HEPATITIS C
     Route: 058
     Dates: start: 20120119, end: 20120202
  2. PEG-INTRON [Concomitant]
     Route: 058
     Dates: start: 20120217
  3. REBETOL [Concomitant]
     Route: 048
     Dates: start: 20120203, end: 20120216
  4. TELAVIC (TELAPREVIR) [Suspect]
     Indication: HEPATITIS C
     Route: 048
     Dates: start: 20120119
  5. REBETOL [Concomitant]
     Route: 048
     Dates: start: 20120217, end: 20120302
  6. PEG-INTRON [Concomitant]
     Route: 058
     Dates: start: 20120302, end: 20120629
  7. REBETOL [Concomitant]
     Route: 048
     Dates: start: 20120303, end: 20120628
  8. PEG-INTRON [Concomitant]
     Route: 058
     Dates: start: 20120203, end: 20120203
  9. REBETOL [Concomitant]
     Indication: HEPATITIS C
     Route: 048
     Dates: start: 20120119, end: 20120202
  10. JANUVIA [Concomitant]
     Route: 048
  11. LUMIGAN [Concomitant]
     Route: 031

REACTIONS (1)
  - RETINAL HAEMORRHAGE [None]
